FAERS Safety Report 15387336 (Version 4)
Quarter: 2019Q4

REPORT INFORMATION
  Report Type: Report from Study
  Country: BR (occurrence: BR)
  Receive Date: 20180914
  Receipt Date: 20191120
  Transmission Date: 20200122
  Serious: Yes (Other)
  Sender: FDA-Public Use
  Company Number: BR-BIOGEN-2018BI00631244

PATIENT
  Age: 53 Year
  Sex: Female

DRUGS (3)
  1. TYSABRI [Suspect]
     Active Substance: NATALIZUMAB
     Indication: MULTIPLE SCLEROSIS
     Dosage: INFUSED FOR 1 HOUR
     Route: 050
     Dates: start: 20120225
  2. SERTRALINE [Concomitant]
     Active Substance: SERTRALINE HYDROCHLORIDE
     Indication: DEPRESSION
     Route: 050
  3. PURAN T4 (LEVOTHYROXINE SODIUM) [Concomitant]
     Indication: PRODUCT USED FOR UNKNOWN INDICATION
     Route: 050

REACTIONS (11)
  - Blood pressure abnormal [Unknown]
  - Blindness [Recovered/Resolved]
  - Heart rate decreased [Not Recovered/Not Resolved]
  - Product dose omission [Recovered/Resolved]
  - Loss of consciousness [Unknown]
  - Dizziness [Unknown]
  - Joint range of motion decreased [Unknown]
  - Multiple sclerosis relapse [Recovered/Resolved]
  - Cardiac failure [Not Recovered/Not Resolved]
  - Paraesthesia [Not Recovered/Not Resolved]
  - Hypertension [Recovered/Resolved]

NARRATIVE: CASE EVENT DATE: 2017
